FAERS Safety Report 9353039 (Version 1)
Quarter: 2013Q2

REPORT INFORMATION
  Report Type: Spontaneous
  Country: US (occurrence: None)
  Receive Date: 20130617
  Receipt Date: 20130617
  Transmission Date: 20140414
  Serious: No
  Sender: FDA-Public Use
  Company Number: None

PATIENT
  Age: 47 Year
  Sex: Female
  Weight: 133.81 kg

DRUGS (1)
  1. NUCYNTA [Suspect]
     Indication: PAIN MANAGEMENT
     Route: 048
     Dates: start: 20121227, end: 20130616

REACTIONS (1)
  - Skin disorder [None]
